FAERS Safety Report 13700927 (Version 1)
Quarter: 2017Q2

REPORT INFORMATION
  Report Type: Spontaneous
  Country: US (occurrence: US)
  Receive Date: 20170628
  Receipt Date: 20170628
  Transmission Date: 20170830
  Serious: Yes (Hospitalization)
  Sender: FDA-Public Use
  Company Number: None

PATIENT
  Age: 79 Year
  Sex: Female
  Weight: 67.8 kg

DRUGS (4)
  1. ELIQUIS [Suspect]
     Active Substance: APIXABAN
     Indication: ATRIAL FIBRILLATION
     Dosage: ?          OTHER DOSE:MG;?
     Route: 048
  2. ELIQUIS [Concomitant]
     Active Substance: APIXABAN
  3. LOVENOX [Concomitant]
     Active Substance: ENOXAPARIN SODIUM
  4. ASPIRIN. [Concomitant]
     Active Substance: ASPIRIN

REACTIONS (7)
  - Somnolence [None]
  - Cerebrovascular accident [None]
  - Clostridium test positive [None]
  - Facial paresis [None]
  - Aphasia [None]
  - Hypotension [None]
  - Haemorrhagic cerebral infarction [None]

NARRATIVE: CASE EVENT DATE: 20170128
